FAERS Safety Report 6133221-0 (Version None)
Quarter: 2009Q1

REPORT INFORMATION
  Report Type: 
  Country: None (occurrence: None)
  Receive Date: 20090324
  Receipt Date: 20090310
  Transmission Date: 20090719
  Serious: Yes (Other)
  Sender: FDA-Public Use
  Company Number: 237661J08USA

PATIENT
  Age: 31 Year
  Sex: Female
  Weight: 53 kg

DRUGS (10)
  1. REBIF [Suspect]
     Indication: MULTIPLE SCLEROSIS
     Dosage: 44 MCG, 3 IN 1 WEEKS, SUBCUTANEOUS
     Route: 058
     Dates: start: 20080805
  2. PROZAC [Concomitant]
  3. WELLBUTRIN [Concomitant]
  4. DITROPAN [Concomitant]
  5. SYNTHROID [Concomitant]
  6. PRAVASTATIN [Concomitant]
  7. CAPTOPRIL [Concomitant]
  8. NEURONTIN [Concomitant]
  9. IBUPROFEN [Concomitant]
  10. INSULIN (INSULIN) [Concomitant]

REACTIONS (1)
  - BLOOD GLUCOSE DECREASED [None]
